FAERS Safety Report 7211358-2 (Version None)
Quarter: 2011Q1

REPORT INFORMATION
  Report Type: 
  Country: None (occurrence: None)
  Receive Date: 20110105
  Receipt Date: 20101229
  Transmission Date: 20110831
  Serious: Yes (Other)
  Sender: FDA-Public Use
  Company Number: FI-JNJFOC-20101108728

PATIENT
  Sex: Female

DRUGS (6)
  1. ZOMIG [Concomitant]
     Indication: ILL-DEFINED DISORDER
     Dosage: IF NEEDED
     Route: 065
  2. TOPAMAX [Suspect]
     Indication: MIGRAINE PROPHYLAXIS
     Dosage: 25-50 MG FOR 1 WEEK
     Route: 048
  3. PANOCOD [Concomitant]
     Indication: ILL-DEFINED DISORDER
     Dosage: IF NEEDED
     Route: 065
  4. TOPAMAX [Suspect]
     Route: 048
  5. TOPAMAX [Suspect]
     Dosage: IN THE EVENING
     Route: 048
  6. TOPAMAX [Suspect]
     Dosage: IN THE EVENING
     Route: 048

REACTIONS (2)
  - MEDICATION ERROR [None]
  - COELIAC DISEASE [None]
